FAERS Safety Report 5935699-1 (Version None)
Quarter: 2008Q4

REPORT INFORMATION
  Report Type: 
  Country: None (occurrence: None)
  Receive Date: 20081029
  Receipt Date: 20081029
  Transmission Date: 20090506
  Serious: Yes (Hospitalization)
  Sender: FDA-Public Use
  Company Number: None

PATIENT
  Sex: Male
  Weight: 57.7 kg

DRUGS (13)
  1. QUETIAPINE FUMARATE [Suspect]
     Indication: DEMENTIA
     Dosage: AS ABOVE
     Route: 048
     Dates: start: 20081007, end: 20081009
  2. QUETIAPINE FUMARATE [Suspect]
     Dosage: AS ABOVE
     Route: 048
     Dates: start: 20080422, end: 20081006
  3. ASPIRIN [Concomitant]
  4. HYDROCHLOROTHIAZIDE [Concomitant]
  5. DOCUSATE [Concomitant]
  6. VERAPAMIL [Concomitant]
  7. TRAZODONE HCL [Concomitant]
  8. SERTRALINE [Concomitant]
  9. PRILOSEC [Concomitant]
  10. GALANTAMINE HYDROBROMIDE [Concomitant]
  11. TIMOLOL OPTH [Concomitant]
  12. TRAVATAN OPTH [Concomitant]
  13. BRIMONIDINE OPTH [Concomitant]

REACTIONS (3)
  - FALL [None]
  - STREPTOCOCCAL INFECTION [None]
  - URINARY TRACT INFECTION [None]
